FAERS Safety Report 14009516 (Version 1)
Quarter: 2017Q3

REPORT INFORMATION
  Report Type: Spontaneous
  Country: US (occurrence: US)
  Receive Date: 20170925
  Receipt Date: 20170925
  Transmission Date: 20171128
  Serious: No
  Sender: FDA-Public Use
  Company Number: US-BAYER-2017-179395

PATIENT
  Age: 77 Year
  Sex: Male
  Weight: 45 kg

DRUGS (6)
  1. ZINC SULFATE [Concomitant]
     Active Substance: ZINC SULFATE\ZINC SULFATE ANHYDROUS
     Dosage: UNK
  2. CLARITIN-D 24 HOUR [Suspect]
     Active Substance: LORATADINE\PSEUDOEPHEDRINE SULFATE
     Indication: NASOPHARYNGITIS
  3. MAGNESIUM [MAGNESIUM] [Concomitant]
     Dosage: UNK
  4. POTASSIUM 99 [Concomitant]
     Dosage: UNK
  5. CLARITIN-D 24 HOUR [Suspect]
     Active Substance: LORATADINE\PSEUDOEPHEDRINE SULFATE
     Indication: HYPERSENSITIVITY
     Dosage: 1 DF, QD
     Route: 048
     Dates: start: 20170914, end: 20170917
  6. CALCIUM C [Concomitant]
     Dosage: UNK

REACTIONS (2)
  - Labelled drug-disease interaction medication error [Unknown]
  - Dysuria [Not Recovered/Not Resolved]

NARRATIVE: CASE EVENT DATE: 20170914
